FAERS Safety Report 15103898 (Version 1)
Quarter: 2018Q3

REPORT INFORMATION
  Report Type: Spontaneous
  Country: US (occurrence: US)
  Receive Date: 20180703
  Receipt Date: 20180703
  Transmission Date: 20181010
  Serious: Yes (Hospitalization, Other)
  Sender: FDA-Public Use
  Company Number: US-OTSUKA-2018_016916

PATIENT

DRUGS (2)
  1. ABILIFY [Suspect]
     Active Substance: ARIPIPRAZOLE
     Indication: ANXIETY
  2. ABILIFY [Suspect]
     Active Substance: ARIPIPRAZOLE
     Indication: BIPOLAR DISORDER
     Dosage: 40 MG, QD
     Route: 065
     Dates: start: 200311, end: 200811

REACTIONS (16)
  - Dermatillomania [Unknown]
  - Compulsive sexual behaviour [Unknown]
  - Compulsive shopping [Unknown]
  - Economic problem [Unknown]
  - Product use in unapproved indication [Unknown]
  - Suicidal ideation [Unknown]
  - Trichotillomania [Unknown]
  - Shoplifting [Unknown]
  - Obsessive-compulsive disorder [Unknown]
  - Eating disorder [Unknown]
  - Overdose [Unknown]
  - Theft [Unknown]
  - Mental disorder [Unknown]
  - Suicide attempt [Unknown]
  - Compulsive hoarding [Unknown]
  - Gambling disorder [Unknown]

NARRATIVE: CASE EVENT DATE: 200311
